FAERS Safety Report 8549479-4 (Version None)
Quarter: 2012Q3

REPORT INFORMATION
  Report Type: 
  Country: None (occurrence: None)
  Receive Date: 20120730
  Receipt Date: 20120718
  Transmission Date: 20120928
  Serious: Yes (Life-Threatening, Hospitalization)
  Sender: FDA-Public Use
  Company Number: US-BAYER-2012-036850

PATIENT
  Age: 46 Year
  Sex: Female
  Weight: 99.773 kg

DRUGS (6)
  1. YASMIN [Suspect]
     Indication: MENORRHAGIA
     Dosage: UNK
     Dates: start: 20060501, end: 20060806
  2. ALLEGRA-D 12 HOUR [Concomitant]
     Dosage: 24 HOUR
     Route: 048
  3. PREVACID [Concomitant]
     Indication: GASTROOESOPHAGEAL REFLUX DISEASE
     Route: 048
  4. RELAFEN [Concomitant]
     Route: 048
  5. CLARITIN-D [Concomitant]
     Dosage: DAILY
     Route: 048
     Dates: start: 20060509
  6. NASONEX [Concomitant]
     Indication: NASAL CONGESTION
     Dosage: UNK
     Route: 045
     Dates: start: 20050101, end: 20090101

REACTIONS (16)
  - DYSPNOEA [None]
  - CARDIAC DISORDER [None]
  - BREAST SWELLING [None]
  - PAIN [None]
  - FEAR [None]
  - SYNCOPE [None]
  - GENERAL PHYSICAL HEALTH DETERIORATION [None]
  - RIGHT VENTRICULAR FAILURE [None]
  - CHEST DISCOMFORT [None]
  - HAEMATOMA [None]
  - PANIC REACTION [None]
  - PULMONARY EMBOLISM [None]
  - ANXIETY [None]
  - EMOTIONAL DISTRESS [None]
  - CONTUSION [None]
  - INJURY [None]
